FAERS Safety Report 8305439 (Version 2)
Quarter: 2013Q1

REPORT INFORMATION
  Report Type: Spontaneous
  Country: US (occurrence: US)
  Receive Date: 20111221
  Receipt Date: 20130321
  Transmission Date: 20140127
  Serious: Yes (Other)
  Sender: FDA-Public Use
  Company Number: US-ROCHE-781591

PATIENT
  Age: 16 Year
  Sex: Male

DRUGS (1)
  1. ACCUTANE [Suspect]
     Indication: ACNE
     Route: 048
     Dates: start: 199407, end: 199410

REACTIONS (6)
  - Inflammatory bowel disease [Unknown]
  - Colitis ulcerative [Unknown]
  - Osteopenia [Unknown]
  - Stress [Unknown]
  - Lip dry [Unknown]
  - Blood triglycerides increased [Unknown]
